FAERS Safety Report 21151112 (Version 2)
Quarter: 2023Q2

REPORT INFORMATION
  Report Type: Report from Study
  Country: JP (occurrence: JP)
  Receive Date: 20220730
  Receipt Date: 20230522
  Transmission Date: 20230721
  Serious: Yes (Life-Threatening, Hospitalization)
  Sender: FDA-Public Use
  Company Number: JP-REGENERON PHARMACEUTICALS, INC.-2022-099032

PATIENT
  Age: 48 Year
  Sex: Male

DRUGS (11)
  1. CEMIPLIMAB [Suspect]
     Active Substance: CEMIPLIMAB
     Indication: Non-small cell lung cancer stage IV
     Dosage: 350 MG, Q3W
     Route: 042
     Dates: start: 20220705, end: 20220726
  2. PACLITAXEL [Suspect]
     Active Substance: PACLITAXEL
     Indication: Non-small cell lung cancer stage IV
     Dosage: 200 MG/M2, Q3W
     Route: 042
     Dates: start: 20220705, end: 20220726
  3. CARBOPLATIN [Suspect]
     Active Substance: CARBOPLATIN
     Indication: Non-small cell lung cancer stage IV
     Dosage: AUC OF 5 OR 6 MG/ML/MINUTE, Q3W
     Route: 042
     Dates: start: 20220705, end: 20220726
  4. LOXOPROFEN SODIUM DIHYDRATE [Concomitant]
     Active Substance: LOXOPROFEN SODIUM DIHYDRATE
     Indication: Non-small cell lung cancer
     Dosage: 180 MG, TID
     Route: 048
     Dates: start: 20220617, end: 20220915
  5. REBAMIPIDE [Concomitant]
     Active Substance: REBAMIPIDE
     Indication: Gastritis prophylaxis
     Dosage: 300 MG, TID
     Route: 048
     Dates: start: 20220617, end: 20220914
  6. CODEINE PHOSPHATE [Concomitant]
     Active Substance: CODEINE PHOSPHATE
     Indication: Non-small cell lung cancer
     Dosage: 20 MG, QD
     Route: 048
     Dates: start: 20220617, end: 20220915
  7. ENSURE [Concomitant]
     Active Substance: AMINO ACIDS\DEXTROSE\ELECTROLYTES NOS\SOYBEAN OIL\VITAMINS
     Indication: Non-small cell lung cancer
     Dosage: 500 ML, BID
     Route: 048
     Dates: start: 20220603, end: 20221009
  8. ACETAMINOPHEN\IBUPROFEN [Concomitant]
     Active Substance: ACETAMINOPHEN\IBUPROFEN
     Indication: Non-small cell lung cancer
     Dosage: 30 MG, QD
     Route: 048
     Dates: start: 20220630, end: 20220915
  9. TRANSAMIN [Concomitant]
     Active Substance: TRANEXAMIC ACID
     Indication: Non-small cell lung cancer
     Dosage: 750 MG, TID
     Route: 048
     Dates: start: 20220630, end: 20220915
  10. MAGNESIUM OXIDE [Concomitant]
     Active Substance: MAGNESIUM OXIDE
     Indication: Constipation
     Dosage: 990 MG, TID
     Route: 048
     Dates: start: 20220705, end: 20220709
  11. DECADRON [Concomitant]
     Active Substance: DEXAMETHASONE
     Indication: Prophylaxis of nausea and vomiting
     Dosage: 4 MG, QD
     Route: 048
     Dates: start: 20220706, end: 20220707

REACTIONS (1)
  - Anaphylactic shock [Recovered/Resolved]

NARRATIVE: CASE EVENT DATE: 20220726
